FAERS Safety Report 13781052 (Version 1)
Quarter: 2017Q3

REPORT INFORMATION
  Report Type: Spontaneous
  Country: US (occurrence: US)
  Receive Date: 20170722
  Receipt Date: 20170722
  Transmission Date: 20171127
  Serious: Yes (Hospitalization)
  Sender: FDA-Public Use
  Company Number: None

PATIENT
  Age: 69 Year
  Sex: Female
  Weight: 117 kg

DRUGS (25)
  1. TRULICITY [Suspect]
     Active Substance: DULAGLUTIDE
     Indication: DIABETES MELLITUS MANAGEMENT
     Dosage: ?          QUANTITY:1 INJECTION(S);OTHER FREQUENCY:ONCE A WEEK;?
     Route: 058
     Dates: start: 20160311, end: 20160318
  2. LISINOPRIL. [Concomitant]
     Active Substance: LISINOPRIL
  3. FLUTICASONE PROPIONATE. [Concomitant]
     Active Substance: FLUTICASONE PROPIONATE
  4. PATADAY [Concomitant]
     Active Substance: OLOPATADINE HYDROCHLORIDE
  5. MAGNESIUM [Concomitant]
     Active Substance: MAGNESIUM
  6. STOOL SOFTENER (DOCUSATE) [Concomitant]
     Active Substance: DOCUSATE
  7. POTASSIUM CHLORIDE. [Concomitant]
     Active Substance: POTASSIUM CHLORIDE
  8. PENTOPRAZOLE [Concomitant]
  9. NOVOLOG [Concomitant]
     Active Substance: INSULIN ASPART
  10. LEVOCETIRIZINE DHCL [Concomitant]
  11. TRULICITY [Suspect]
     Active Substance: DULAGLUTIDE
     Indication: DIABETES MELLITUS
     Dosage: ?          QUANTITY:1 INJECTION(S);OTHER FREQUENCY:ONCE A WEEK;?
     Route: 058
     Dates: start: 20160311, end: 20160318
  12. FARXIGA [Suspect]
     Active Substance: DAPAGLIFLOZIN PROPANEDIOL
     Indication: GLYCOSYLATED HAEMOGLOBIN INCREASED
     Dosage: ?          QUANTITY:1 TABLET(S);?
     Route: 048
  13. FUROSEMIDE. [Concomitant]
     Active Substance: FUROSEMIDE
  14. LEVOTHYROXINE. [Concomitant]
     Active Substance: LEVOTHYROXINE
  15. LANTUS LONG ACTING INSULIN [Concomitant]
  16. IPRATROPIUM/ALBUTEROL SOLUTION [Concomitant]
  17. MULTIVITAMIN W/IRON [Concomitant]
  18. METFORMIN [Concomitant]
     Active Substance: METFORMIN HYDROCHLORIDE
  19. SYMBICORT [Concomitant]
     Active Substance: BUDESONIDE\FORMOTEROL FUMARATE DIHYDRATE
  20. VENTOLIN HFA [Concomitant]
     Active Substance: ALBUTEROL SULFATE
  21. MUCINEX [Concomitant]
     Active Substance: GUAIFENESIN
  22. ASPIRIN. [Concomitant]
     Active Substance: ASPIRIN
  23. MONTELUKAST [Concomitant]
     Active Substance: MONTELUKAST SODIUM
  24. CLEOCIN [Concomitant]
     Active Substance: CLINDAMYCIN PHOSPHATE
  25. VOLTAREN [Concomitant]
     Active Substance: DICLOFENAC SODIUM

REACTIONS (3)
  - Urinary tract infection [None]
  - Nephrolithiasis [None]
  - Gallbladder disorder [None]

NARRATIVE: CASE EVENT DATE: 20160311
